FAERS Safety Report 22968558 (Version 2)
Quarter: 2023Q4

REPORT INFORMATION
  Report Type: Spontaneous
  Country: US (occurrence: US)
  Receive Date: 20230921
  Receipt Date: 20231013
  Transmission Date: 20240110
  Serious: Yes (Other)
  Sender: FDA-Public Use
  Company Number: US-BAUSCHBL-2023BNL008616

PATIENT
  Age: 40 Year
  Sex: Male
  Weight: 115.6 kg

DRUGS (1)
  1. HYDROCORTISONE\NEOMYCIN SULFATE\POLYMYXIN B SULFATE [Suspect]
     Active Substance: HYDROCORTISONE\NEOMYCIN SULFATE\POLYMYXIN B SULFATE
     Indication: Ear pain
     Dosage: TOOK ONLY FOR A WEEK
     Route: 065
     Dates: start: 202309, end: 2023

REACTIONS (4)
  - Ear disorder [Not Recovered/Not Resolved]
  - Paraesthesia [Recovered/Resolved]
  - Extra dose administered [Unknown]
  - Product dose omission issue [Unknown]

NARRATIVE: CASE EVENT DATE: 20230101
